FAERS Safety Report 9360712 (Version 2)
Quarter: 2013Q3

REPORT INFORMATION
  Report Type: Spontaneous
  Country: JP (occurrence: JP)
  Receive Date: 20130621
  Receipt Date: 20130718
  Transmission Date: 20140515
  Serious: Yes (Life-Threatening)
  Sender: FDA-Public Use
  Company Number: JP-MYLANLABS-2013S1012732

PATIENT
  Age: 76 Year
  Sex: Male

DRUGS (9)
  1. CARBOPLATIN [Suspect]
     Indication: SQUAMOUS CELL CARCINOMA OF LUNG
     Route: 041
     Dates: start: 20130606, end: 20130606
  2. TS-1 [Suspect]
     Indication: SQUAMOUS CELL CARCINOMA OF LUNG
     Route: 048
     Dates: start: 20130606, end: 20130606
  3. GRANISETRON [Concomitant]
     Indication: SQUAMOUS CELL CARCINOMA OF LUNG
     Route: 041
     Dates: start: 20130606, end: 20130606
  4. DEXART [Concomitant]
     Indication: SQUAMOUS CELL CARCINOMA OF LUNG
     Dates: start: 20130606, end: 20130606
  5. SOLDEM [Concomitant]
     Indication: SQUAMOUS CELL CARCINOMA OF LUNG
     Route: 041
     Dates: start: 20130606, end: 20130606
  6. GLACTIV [Concomitant]
     Indication: DIABETES MELLITUS
     Route: 048
  7. DIOVAN [Concomitant]
     Indication: HYPERTENSION
  8. AMARYL [Concomitant]
     Indication: DIABETES MELLITUS
     Route: 048
  9. EMEND /01627301/ [Concomitant]
     Indication: SQUAMOUS CELL CARCINOMA OF LUNG
     Route: 048

REACTIONS (3)
  - Atrioventricular block complete [Recovered/Resolved with Sequelae]
  - Stress cardiomyopathy [Recovered/Resolved with Sequelae]
  - Cardiac arrest [Recovered/Resolved with Sequelae]
